FAERS Safety Report 5835028-8 (Version None)
Quarter: 2008Q3

REPORT INFORMATION
  Report Type: 
  Country: None (occurrence: None)
  Receive Date: 20080804
  Receipt Date: 20080717
  Transmission Date: 20090109
  Serious: Yes (Death, Life-Threatening)
  Sender: FDA-Public Use
  Company Number: 2008BI019118

PATIENT
  Age: 69 Year
  Sex: Female

DRUGS (6)
  1. ZEVALIN [Suspect]
     Indication: NON-HODGKIN'S LYMPHOMA
  2. CARMUSTINE [Concomitant]
  3. ETOPOSIDE [Concomitant]
  4. CYTARABINE [Concomitant]
  5. MELPHALAN [Concomitant]
  6. IMMUNOCHEMOTHERAPY [Concomitant]

REACTIONS (2)
  - ENCEPHALITIS VIRAL [None]
  - THROMBOCYTOPENIA [None]
